FAERS Safety Report 5807914-6 (Version None)
Quarter: 2008Q3

REPORT INFORMATION
  Report Type: 
  Country: None (occurrence: None)
  Receive Date: 20080711
  Receipt Date: 20080701
  Transmission Date: 20090109
  Serious: Yes (Life-Threatening, Hospitalization, Other)
  Sender: FDA-Public Use
  Company Number: US-PFIZER INC-2008010750

PATIENT
  Sex: Male
  Weight: 90.7 kg

DRUGS (1)
  1. DILANTIN [Suspect]
     Indication: CONVULSION
     Dosage: DAILY DOSE:100MG
     Route: 048
     Dates: start: 20020501, end: 20080111

REACTIONS (4)
  - DRUG INEFFECTIVE [None]
  - DRUG LEVEL DECREASED [None]
  - EMOTIONAL DISORDER [None]
  - GRAND MAL CONVULSION [None]
